FAERS Safety Report 23668622 (Version 1)
Quarter: 2024Q1

REPORT INFORMATION
  Report Type: Spontaneous
  Country: US (occurrence: None)
  Receive Date: 20240323
  Receipt Date: 20240323
  Transmission Date: 20240410
  Serious: Yes (Congenital Anomaly)
  Sender: FDA-Public Use
  Company Number: None

PATIENT
  Sex: Female

DRUGS (1)
  1. TERBUTALINE [Suspect]
     Active Substance: TERBUTALINE
     Indication: Premature labour
     Dates: start: 20040315, end: 20040620

REACTIONS (4)
  - Autism spectrum disorder [None]
  - Maternal drugs affecting foetus [None]
  - Congenital anomaly [None]
  - Thyroid disorder [None]

NARRATIVE: CASE EVENT DATE: 20040620
